FAERS Safety Report 9340935 (Version 1)
Quarter: 2013Q2

REPORT INFORMATION
  Report Type: Other
  Country: US (occurrence: US)
  Receive Date: 20130610
  Receipt Date: 20130610
  Transmission Date: 20140414
  Serious: Yes (Other)
  Sender: FDA-Public Use
  Company Number: US-ACTELION-A-CH2013-83909

PATIENT
  Sex: Female

DRUGS (5)
  1. TRACLEER [Suspect]
     Indication: PULMONARY ARTERIAL HYPERTENSION
     Dosage: 15.6 MG, QD
     Route: 048
  2. SILDENAFIL [Concomitant]
     Dosage: 0.5 MG/KG, UNK
  3. FUROSEMIDE [Concomitant]
  4. SPIRONOLACTONE [Concomitant]
  5. ALBUTEROL [Concomitant]

REACTIONS (2)
  - Atrial septal defect repair [Recovered/Resolved]
  - Autoimmune disorder [Unknown]
